FAERS Safety Report 20924362 (Version 7)
Quarter: 2023Q1

REPORT INFORMATION
  Report Type: Spontaneous
  Country: TH (occurrence: TH)
  Receive Date: 20220607
  Receipt Date: 20230109
  Transmission Date: 20230418
  Serious: Yes (Life-Threatening, Hospitalization, Other)
  Sender: FDA-Public Use
  Company Number: TH-MLMSERVICE-20220520-3571425-1

PATIENT
  Age: 8 Decade
  Sex: Female
  Weight: 50 kg

DRUGS (7)
  1. LORAZEPAM [Suspect]
     Active Substance: LORAZEPAM
     Dosage: 80 TABLETS OF ALPRAZOLAM AND LORAZEPAM
     Route: 048
  2. ALPRAZOLAM [Suspect]
     Active Substance: ALPRAZOLAM
     Dosage: 80 TABLETS OF ALPRAZOLAM AND LORAZEPAM
     Route: 048
  3. CLARITHROMYCIN [Concomitant]
     Active Substance: CLARITHROMYCIN
     Indication: Helicobacter gastritis
     Dosage: UNK
  4. AMOXICILLIN [Concomitant]
     Active Substance: AMOXICILLIN
     Indication: Helicobacter gastritis
     Dosage: UNK
  5. DIAZEPAM [Concomitant]
     Active Substance: DIAZEPAM
     Indication: Insomnia
     Dosage: UNK
  6. TRAZODONE [Concomitant]
     Active Substance: TRAZODONE HYDROCHLORIDE
     Indication: Insomnia
     Dosage: UNK
  7. OMEPRAZOLE SODIUM [Concomitant]
     Active Substance: OMEPRAZOLE SODIUM
     Indication: Helicobacter gastritis
     Dosage: UNK

REACTIONS (10)
  - Overdose [Recovered/Resolved]
  - Hypopnoea [Recovered/Resolved]
  - Hypothermia [Recovered/Resolved]
  - Areflexia [Recovered/Resolved]
  - Toxicity to various agents [Recovered/Resolved]
  - Coma [Recovered/Resolved]
  - Miosis [Recovered/Resolved]
  - Hyperreflexia [Recovered/Resolved]
  - Hypertonia [Recovered/Resolved]
  - Loss of consciousness [Recovering/Resolving]

NARRATIVE: CASE EVENT DATE: 20210501
